FAERS Safety Report 14181145 (Version 1)
Quarter: 2017Q4

REPORT INFORMATION
  Report Type: Spontaneous
  Country: AT (occurrence: AT)
  Receive Date: 20171112
  Receipt Date: 20171112
  Transmission Date: 20180321
  Serious: Yes (Disabling)
  Sender: FDA-Public Use
  Company Number: AT-TEVA-824184ISR

PATIENT
  Age: 42 Year
  Sex: Male
  Weight: 83 kg

DRUGS (3)
  1. PAROXAT HEXAL 20MG [Suspect]
     Active Substance: PAROXETINE HYDROCHLORIDE
     Indication: DEPRESSION
     Dosage: 20 MILLIGRAM DAILY; 1-0-0 (ONE IN THE MORNING)
     Dates: start: 201401, end: 201410
  2. MIRTABENE 30MG [Suspect]
     Active Substance: MIRTAZAPINE
     Indication: DEPRESSION
     Dosage: 30 MILLIGRAM DAILY; 0-0-1 (ONE IN THE EVENING)
     Dates: start: 201401, end: 201403
  3. XANOR [Concomitant]
     Active Substance: ALPRAZOLAM
     Indication: DEPRESSION
     Dosage: CHANGING
     Dates: start: 201401, end: 201402

REACTIONS (2)
  - Sexual dysfunction [Not Recovered/Not Resolved]
  - Androgen deficiency [Not Recovered/Not Resolved]

NARRATIVE: CASE EVENT DATE: 2014
